FAERS Safety Report 23929693 (Version 2)
Quarter: 2025Q3

REPORT INFORMATION
  Report Type: Spontaneous
  Country: US (occurrence: US)
  Receive Date: 20240601
  Receipt Date: 20250703
  Transmission Date: 20251021
  Serious: No
  Sender: RADIUS PHARM
  Company Number: US-RADIUS HEALTH INC.-2024US000720

PATIENT
  Age: 69 Year
  Sex: Female

DRUGS (2)
  1. TYMLOS [Suspect]
     Active Substance: ABALOPARATIDE
     Indication: Senile osteoporosis
     Route: 058
  2. TYMLOS [Suspect]
     Active Substance: ABALOPARATIDE
     Route: 058

REACTIONS (10)
  - Sleep disorder [Unknown]
  - Fear of injection [Unknown]
  - Poor quality sleep [Unknown]
  - Middle insomnia [Unknown]
  - Muscle tightness [Unknown]
  - Faeces soft [Unknown]
  - Abdominal pain upper [Unknown]
  - Nausea [Unknown]
  - Heart rate irregular [Unknown]
  - Intentional product misuse [Unknown]

NARRATIVE: CASE EVENT DATE: 20240205
